FAERS Safety Report 12464141 (Version 3)
Quarter: 2016Q4

REPORT INFORMATION
  Report Type: Spontaneous
  Country: US (occurrence: US)
  Receive Date: 20160614
  Receipt Date: 20161116
  Transmission Date: 20170207
  Serious: No
  Sender: FDA-Public Use
  Company Number: US-GLAXOSMITHKLINE-US2016076686

PATIENT
  Age: 57 Year
  Sex: Female
  Weight: 109.75 kg

DRUGS (1)
  1. NUCALA [Suspect]
     Active Substance: MEPOLIZUMAB
     Indication: ASTHMA
     Dates: start: 20160429

REACTIONS (4)
  - Dysgeusia [Unknown]
  - Tongue discolouration [Unknown]
  - Pyrexia [Unknown]
  - Swollen tongue [Unknown]

NARRATIVE: CASE EVENT DATE: 20160429
